FAERS Safety Report 14160474 (Version 1)
Quarter: 2017Q4

REPORT INFORMATION
  Report Type: Report from Study
  Country: US (occurrence: US)
  Receive Date: 20171106
  Receipt Date: 20171106
  Transmission Date: 20180321
  Serious: Yes (Other)
  Sender: FDA-Public Use
  Company Number: PHEH2017US034566

PATIENT
  Sex: Female

DRUGS (1)
  1. SANDOSTATIN [Suspect]
     Active Substance: OCTREOTIDE ACETATE
     Indication: PRODUCT USED FOR UNKNOWN INDICATION
     Route: 065

REACTIONS (12)
  - Oesophagitis [Unknown]
  - Carcinoid syndrome [Unknown]
  - Breast mass [Unknown]
  - Limb mass [Unknown]
  - Mass [Unknown]
  - Malaise [Unknown]
  - Weight decreased [Unknown]
  - Dysphagia [Unknown]
  - Disease progression [Unknown]
  - Neck mass [Unknown]
  - Haemorrhoids [Unknown]
  - Anorectal disorder [Unknown]
